FAERS Safety Report 5401346-0 (Version None)
Quarter: 2007Q3

REPORT INFORMATION
  Report Type: 
  Country: None (occurrence: None)
  Receive Date: 20070731
  Receipt Date: 20070724
  Transmission Date: 20080115
  Serious: Yes (Disabling, Other)
  Sender: FDA-Public Use
  Company Number: A0666068A

PATIENT
  Sex: Female

DRUGS (4)
  1. ADVAIR DISKUS 100/50 [Suspect]
     Indication: ASTHMA
     Dosage: 1PUFF TWICE PER DAY
     Route: 055
     Dates: start: 20060101
  2. SINGULAIR [Concomitant]
  3. ALBUTEROL [Concomitant]
     Route: 065
  4. FOSAMAX [Concomitant]
     Indication: DRUG USE FOR UNKNOWN INDICATION
     Route: 065

REACTIONS (6)
  - CHILLS [None]
  - COUGH [None]
  - OXYGEN SATURATION DECREASED [None]
  - PNEUMONIA [None]
  - POOR QUALITY SLEEP [None]
  - SPUTUM DISCOLOURED [None]
